FAERS Safety Report 16155956 (Version 1)
Quarter: 2019Q2

REPORT INFORMATION
  Report Type: Spontaneous
  Country: JP (occurrence: JP)
  Receive Date: 20190404
  Receipt Date: 20190404
  Transmission Date: 20190711
  Serious: Yes (Other)
  Sender: FDA-Public Use
  Company Number: JP-MALLINCKRODT-T201902808

PATIENT
  Age: 84 Year
  Sex: Male

DRUGS (7)
  1. METHADONE [Suspect]
     Active Substance: METHADONE HYDROCHLORIDE
     Indication: CANCER PAIN
     Dosage: 5 MG, UNK (DAILY DOSE 15 MG)
     Route: 048
  2. TRYPTANOL [Concomitant]
     Active Substance: AMITRIPTYLINE
     Indication: ANALGESIC THERAPY
     Dosage: UNK
     Route: 065
  3. LYRICA [Concomitant]
     Active Substance: PREGABALIN
     Indication: ANALGESIC THERAPY
     Dosage: 75 MG, UNK (DAILY DOSE 150 MG)
     Route: 065
  4. OXINORM [Concomitant]
     Dosage: PRN
     Route: 065
  5. LOXOPROFEN NA [Concomitant]
     Active Substance: LOXOPROFEN SODIUM
     Indication: CANCER PAIN
     Dosage: 1 DF, UNK (DAILY DOSE 3DF)
     Route: 065
  6. METHADONE [Suspect]
     Active Substance: METHADONE HYDROCHLORIDE
     Dosage: 5 MG, UNK (DAILY DOSE 10 MG)
     Route: 048
  7. OXINORM [Concomitant]
     Indication: ANALGESIC THERAPY
     Dosage: 40 MG, QD
     Route: 065

REACTIONS (2)
  - Depressed level of consciousness [Unknown]
  - Somnolence [Unknown]
